FAERS Safety Report 21193234 (Version 2)
Quarter: 2022Q4

REPORT INFORMATION
  Report Type: Report from Study
  Country: US (occurrence: US)
  Receive Date: 20220810
  Receipt Date: 20221108
  Transmission Date: 20230112
  Serious: Yes (Hospitalization, Other)
  Sender: FDA-Public Use
  Company Number: US-ARGENX-2022-ARGX-US001410

PATIENT

DRUGS (1)
  1. VYVGART [Suspect]
     Active Substance: EFGARTIGIMOD ALFA-FCAB
     Indication: Product used for unknown indication

REACTIONS (8)
  - Thyroidectomy [Unknown]
  - Myasthenia gravis crisis [Not Recovered/Not Resolved]
  - Post procedural complication [Not Recovered/Not Resolved]
  - Neoplasm malignant [Unknown]
  - Asthenia [Unknown]
  - Dysarthria [Unknown]
  - Dyspnoea [Unknown]
  - Feeling abnormal [Not Recovered/Not Resolved]
